FAERS Safety Report 7448247-4 (Version None)
Quarter: 2011Q2

REPORT INFORMATION
  Report Type: 
  Country: None (occurrence: None)
  Receive Date: 20110429
  Receipt Date: 20100414
  Transmission Date: 20111010
  Serious: No
  Sender: FDA-Public Use
  Company Number: US-ASTRAZENECA-2010SE16598

PATIENT
  Age: 53 Year
  Sex: Male

DRUGS (4)
  1. METFORMIN [Concomitant]
  2. LIPITOR [Concomitant]
  3. NEXIUM [Suspect]
     Indication: HIATUS HERNIA
     Route: 048
     Dates: start: 20100407
  4. GEODON [Concomitant]

REACTIONS (2)
  - CONSTIPATION [None]
  - INAPPROPRIATE SCHEDULE OF DRUG ADMINISTRATION [None]
